FAERS Safety Report 25712797 (Version 2)
Quarter: 2025Q3

REPORT INFORMATION
  Report Type: Spontaneous
  Country: EG (occurrence: EG)
  Receive Date: 20250821
  Receipt Date: 20250905
  Transmission Date: 20251021
  Serious: Yes (Other)
  Sender: NOVO NORDISK
  Company Number: EG-NOVOPROD-1501143

PATIENT
  Age: 779 Month
  Sex: Female
  Weight: 95 kg

DRUGS (11)
  1. .ALPHA.-LIPOIC ACID [Concomitant]
     Active Substance: .ALPHA.-LIPOIC ACID
     Indication: Nervous system disorder
     Route: 048
  2. DIMRA [Concomitant]
     Indication: Hypotonia
     Dosage: 1 IU, QD (0.5 U AT MORNING AND 0.5 U AT NIGHT)
     Route: 048
  3. PLAVIX [Concomitant]
     Active Substance: CLOPIDOGREL BISULFATE
     Indication: Anticoagulant therapy
     Route: 048
  4. ANALLERGE [Concomitant]
     Indication: Haemorrhagic urticaria
     Route: 048
  5. TORSEMIDE [Concomitant]
     Active Substance: TORSEMIDE
     Indication: Diuretic therapy
     Route: 048
  6. INSULIN HUMAN [Suspect]
     Active Substance: INSULIN HUMAN
     Indication: Diabetes mellitus
     Dosage: 60 IU, QD (35U AT MORNING AND 25U AT NIGHT)
     Route: 058
  7. EPIMAG [Concomitant]
     Indication: Renal impairment
     Route: 048
  8. URIDIN [Concomitant]
     Indication: Renal impairment
     Route: 048
  9. AMLODIPINE BESYLATE\HYDROCHLOROTHIAZIDE\OLMESARTAN MEDOXOMIL [Concomitant]
     Active Substance: AMLODIPINE BESYLATE\HYDROCHLOROTHIAZIDE\OLMESARTAN MEDOXOMIL
     Indication: Hypertension
     Route: 048
  10. VALPROIC ACID [Concomitant]
     Active Substance: VALPROIC ACID
     Indication: Gout
     Route: 048
  11. ALLOPURINOL [Concomitant]
     Active Substance: ALLOPURINOL
     Indication: Gout
     Route: 048

REACTIONS (1)
  - Rheumatoid arthritis [Not Recovered/Not Resolved]
